FAERS Safety Report 6007012-5 (Version None)
Quarter: 2008Q4

REPORT INFORMATION
  Report Type: 
  Country: None (occurrence: None)
  Receive Date: 20081217
  Receipt Date: 20071220
  Transmission Date: 20090506
  Serious: No
  Sender: FDA-Public Use
  Company Number: US-ASTRAZENECA-2007UW28703

PATIENT
  Sex: Male

DRUGS (3)
  1. CRESTOR [Suspect]
  2. TRICOR [Concomitant]
  3. LEVOXYL [Concomitant]

REACTIONS (1)
  - ADVERSE DRUG REACTION [None]
